FAERS Safety Report 8200115-6 (Version None)
Quarter: 2012Q1

REPORT INFORMATION
  Report Type: 
  Country: None (occurrence: None)
  Receive Date: 20120309
  Receipt Date: 20120309
  Transmission Date: 20120608
  Serious: Yes (Hospitalization, Other)
  Sender: FDA-Public Use
  Company Number: None

PATIENT
  Sex: Female

DRUGS (3)
  1. REVLIMID [Suspect]
     Indication: MULTIPLE MYELOMA
     Dosage: 20 MG DAILY X21D/28D ORALLY
     Route: 048
     Dates: start: 20120101
  2. ZOMETA [Concomitant]
  3. GABAPENTIN [Concomitant]

REACTIONS (4)
  - PNEUMONIA STREPTOCOCCAL [None]
  - NEUTROPENIA [None]
  - LOBAR PNEUMONIA [None]
  - THROMBOCYTOPENIA [None]
